FAERS Safety Report 4840263-1 (Version None)
Quarter: 2005Q4

REPORT INFORMATION
  Report Type: 
  Country: None (occurrence: None)
  Receive Date: 20051129
  Receipt Date: 20050818
  Transmission Date: 20060501
  Serious: Yes (Hospitalization)
  Sender: FDA-Public Use
  Company Number: US-MERCK-0508USA03434

PATIENT
  Age: 50 Year
  Sex: Male
  Weight: 75 kg

DRUGS (4)
  1. VIOXX [Suspect]
     Indication: ANKYLOSING SPONDYLITIS
     Route: 048
     Dates: start: 20010101, end: 20030812
  2. FLEXERIL [Concomitant]
     Route: 065
  3. VICODIN [Concomitant]
     Route: 065
  4. ACIPHEX [Concomitant]
     Route: 065

REACTIONS (4)
  - CORONARY ARTERY DISEASE [None]
  - CORONARY ARTERY OCCLUSION [None]
  - GASTROOESOPHAGEAL REFLUX DISEASE [None]
  - ULCER [None]
